FAERS Safety Report 23182911 (Version 1)
Quarter: 2023Q4

REPORT INFORMATION
  Report Type: Spontaneous
  Country: US (occurrence: None)
  Receive Date: 20231114
  Receipt Date: 20231114
  Transmission Date: 20240110
  Serious: Yes (Hospitalization)
  Sender: FDA-Public Use
  Company Number: None

PATIENT
  Age: 53 Year
  Sex: Male

DRUGS (10)
  1. OLUMIANT [Suspect]
     Active Substance: BARICITINIB
     Indication: Alopecia
     Dosage: FREQUENCY : DAILY;?
     Route: 048
  2. DOXYCYCLINE [Concomitant]
     Active Substance: DOXYCYCLINE
  3. DULOXETINE [Concomitant]
     Active Substance: DULOXETINE
  4. MOTRIN [Concomitant]
     Active Substance: IBUPROFEN
  5. KETOCONAZOLE [Concomitant]
     Active Substance: KETOCONAZOLE
  6. LOSARTAN [Concomitant]
     Active Substance: LOSARTAN
  7. METHYLPREDNISOLONE [Concomitant]
     Active Substance: METHYLPREDNISOLONE
  8. Mometasone 0.1 % ointment [Concomitant]
  9. OXYCODONE [Concomitant]
     Active Substance: OXYCODONE
  10. Olumiant 4 mg [Concomitant]

REACTIONS (2)
  - Fall [None]
  - Lower limb fracture [None]

NARRATIVE: CASE EVENT DATE: 20230919
